FAERS Safety Report 22129116 (Version 2)
Quarter: 2023Q2

REPORT INFORMATION
  Report Type: Spontaneous
  Country: US (occurrence: US)
  Receive Date: 20230323
  Receipt Date: 20230509
  Transmission Date: 20230722
  Serious: Yes (Other)
  Sender: FDA-Public Use
  Company Number: US-AUROBINDO-AUR-APL-2023-012388

PATIENT
  Age: 44 Year
  Sex: Male

DRUGS (8)
  1. BACLOFEN [Suspect]
     Active Substance: BACLOFEN
     Indication: Glossopharyngeal neuralgia
     Dosage: UNK
     Route: 065
  2. DEXAMETHASONE [Suspect]
     Active Substance: DEXAMETHASONE
     Indication: Glossopharyngeal neuralgia
     Dosage: UNK
     Route: 065
  3. DIVALPROEX SODIUM [Suspect]
     Active Substance: DIVALPROEX SODIUM
     Indication: Glossopharyngeal neuralgia
     Dosage: UNK
     Route: 065
  4. HYDROMORPHONE [Suspect]
     Active Substance: HYDROMORPHONE
     Indication: Glossopharyngeal neuralgia
     Dosage: UNK
     Route: 065
  5. OXYCODONE [Suspect]
     Active Substance: OXYCODONE
     Indication: Glossopharyngeal neuralgia
     Dosage: UNK
     Route: 065
  6. INDOMETHACIN [Suspect]
     Active Substance: INDOMETHACIN
     Indication: Glossopharyngeal neuralgia
     Dosage: UNK
     Route: 065
  7. INDOMETHACIN [Suspect]
     Active Substance: INDOMETHACIN
     Indication: Headache
  8. CARBAMAZEPINE [Concomitant]
     Active Substance: CARBAMAZEPINE
     Indication: Hot flush
     Dosage: UNK
     Route: 065

REACTIONS (1)
  - Drug ineffective [Unknown]
